FAERS Safety Report 7802826-0 (Version None)
Quarter: 2011Q4

REPORT INFORMATION
  Report Type: 
  Country: None (occurrence: None)
  Receive Date: 20111007
  Receipt Date: 20110930
  Transmission Date: 20120403
  Serious: Yes (Disabling)
  Sender: FDA-Public Use
  Company Number: US-MERCK-1105USA00583

PATIENT
  Age: 66 Year
  Sex: Female

DRUGS (2)
  1. CENTRUM [Concomitant]
     Route: 065
  2. FOSAMAX [Suspect]
     Indication: OSTEOPENIA
     Route: 048
     Dates: start: 19990101, end: 20070101

REACTIONS (5)
  - FEMUR FRACTURE [None]
  - FRACTURE NONUNION [None]
  - TOOTH EXTRACTION [None]
  - BLOOD CHOLESTEROL ABNORMAL [None]
  - HYPERTENSION [None]
